FAERS Safety Report 8027483-2 (Version None)
Quarter: 2012Q1

REPORT INFORMATION
  Report Type: 
  Country: None (occurrence: None)
  Receive Date: 20120106
  Receipt Date: 20111227
  Transmission Date: 20120608
  Serious: Yes (Hospitalization)
  Sender: FDA-Public Use
  Company Number: FR-SANOFI-AVENTIS-2011SA084814

PATIENT
  Age: 84 Year
  Sex: Female

DRUGS (6)
  1. LASIX [Suspect]
     Route: 048
     Dates: end: 20100501
  2. BISOPROLOL FUMARATE [Concomitant]
     Route: 065
  3. ALDACTONE [Concomitant]
     Route: 065
  4. DIGOXIN [Concomitant]
     Route: 065
  5. TRIMETAZIDINE HYDROCHLORIDE [Concomitant]
     Route: 065
  6. LEXOMIL [Concomitant]
     Route: 065

REACTIONS (1)
  - RENAL FAILURE ACUTE [None]
